FAERS Safety Report 13585381 (Version 4)
Quarter: 2020Q4

REPORT INFORMATION
  Report Type: Spontaneous
  Country: US (occurrence: US)
  Receive Date: 20170526
  Receipt Date: 20201113
  Transmission Date: 20210113
  Serious: Yes (Hospitalization, Other)
  Sender: FDA-Public Use
  Company Number: US-ASTRAZENECA-2017SE53941

PATIENT
  Age: 62 Year
  Sex: Male
  Weight: 72.6 kg

DRUGS (69)
  1. NEXIUM [Suspect]
     Active Substance: ESOMEPRAZOLE MAGNESIUM
     Indication: GASTROOESOPHAGEAL REFLUX DISEASE
     Dosage: 1.0DF AS REQUIRED
     Route: 048
  2. NEXIUM [Suspect]
     Active Substance: ESOMEPRAZOLE MAGNESIUM
     Indication: GASTROOESOPHAGEAL REFLUX DISEASE
     Dosage: AS REQUIRED
     Route: 048
     Dates: start: 20141205
  3. HYDROCHLOROTHIAZIDE. [Concomitant]
     Active Substance: HYDROCHLOROTHIAZIDE
     Indication: BLOOD PRESSURE MEASUREMENT
     Dosage: Q-DAY1.0DF AS REQUIRED
     Route: 065
  4. AMLODIPINE [Concomitant]
     Active Substance: AMLODIPINE BESYLATE
     Route: 048
     Dates: start: 20141117
  5. ONDANSETRON [Concomitant]
     Active Substance: ONDANSETRON
     Indication: VOMITING
     Dosage: TAKE ONE TABLET EVERY 4 TO 6 HOURS1.0DF AS REQUIRED
     Route: 048
     Dates: start: 20140131
  6. GABAPENTIN. [Concomitant]
     Active Substance: GABAPENTIN
     Route: 065
     Dates: start: 20150506
  7. SMZ/TMP [Concomitant]
     Active Substance: SULFAMETHOXAZOLE\TRIMETHOPRIM
     Route: 048
     Dates: start: 20051021
  8. DOXAZOSIN [Concomitant]
     Active Substance: DOXAZOSIN MESYLATE
  9. HYDROXYZINE [Concomitant]
     Active Substance: HYDROXYZINE HYDROCHLORIDE
  10. TRAZODONE [Concomitant]
     Active Substance: TRAZODONE HYDROCHLORIDE
  11. PANTOPRAZOLE [Concomitant]
     Active Substance: PANTOPRAZOLE
     Indication: GASTROOESOPHAGEAL REFLUX DISEASE
     Route: 065
     Dates: start: 20150820
  12. HYDROCHLOROTHIAZIDE+LISINOPRIL [Concomitant]
     Indication: HYPERTENSION
     Dosage: 20-12.5 MG
     Route: 048
     Dates: start: 20090610
  13. BYSTOLIC [Concomitant]
     Active Substance: NEBIVOLOL HYDROCHLORIDE
     Route: 048
     Dates: start: 20150217
  14. METRONIDAZOLE. [Concomitant]
     Active Substance: METRONIDAZOLE
     Route: 048
     Dates: start: 20110321
  15. HYDROCO*APAP [Concomitant]
     Indication: PAIN
     Dosage: 5/12; TAKE ONE OR TWO TABLBTS WITH FOOO;GENERIC EVERY 4 - 6 HOURS
     Route: 048
     Dates: start: 20140131
  16. RENVELA [Concomitant]
     Active Substance: SEVELAMER CARBONATE
     Route: 048
     Dates: start: 20151014
  17. RENVELA [Concomitant]
     Active Substance: SEVELAMER CARBONATE
     Route: 065
     Dates: start: 20150506
  18. COMBIGAN [Concomitant]
     Active Substance: BRIMONIDINE TARTRATE\TIMOLOL MALEATE
  19. NEXIUM [Suspect]
     Active Substance: ESOMEPRAZOLE MAGNESIUM
     Indication: DYSPEPSIA
     Dosage: 1.0DF AS REQUIRED
     Route: 048
  20. SIMVASTATIN. [Concomitant]
     Active Substance: SIMVASTATIN
     Indication: BLOOD CHOLESTEROL
     Dosage: 1.0DF AS REQUIRED
     Route: 065
     Dates: start: 20090713
  21. CEPHALEXIN. [Concomitant]
     Active Substance: CEPHALEXIN
     Indication: INFECTION
     Dosage: GENERIC500.0MG AS REQUIRED
     Route: 048
     Dates: start: 20070912
  22. ONDANSETRON [Concomitant]
     Active Substance: ONDANSETRON
     Indication: NAUSEA
     Dosage: TAKE ONE TABLET EVERY 4 TO 6 HOURS1.0DF AS REQUIRED
     Route: 048
     Dates: start: 20140131
  23. FEXOFENADINE [Concomitant]
     Active Substance: FEXOFENADINE HYDROCHLORIDE
     Dates: start: 20110121
  24. CIPROFLOXACIN. [Concomitant]
     Active Substance: CIPROFLOXACIN
  25. AZELASTINE. [Concomitant]
     Active Substance: AZELASTINE HYDROCHLORIDE
     Dates: start: 20200206
  26. AZITHROMYCIN ANHYDROUS. [Concomitant]
     Active Substance: AZITHROMYCIN ANHYDROUS
     Dates: start: 20200206
  27. LATANOPROST. [Concomitant]
     Active Substance: LATANOPROST
  28. NEXIUM [Suspect]
     Active Substance: ESOMEPRAZOLE MAGNESIUM
     Indication: GASTROOESOPHAGEAL REFLUX DISEASE
     Dosage: AS REQUIRED
     Route: 048
     Dates: start: 20100920
  29. VIAGRA [Concomitant]
     Active Substance: SILDENAFIL CITRATE
     Dosage: 100.0MG AS REQUIRED
     Route: 065
  30. CARVEDILOL. [Concomitant]
     Active Substance: CARVEDILOL
     Dosage: AS REQUIRED
     Route: 065
  31. AMLODIPINE [Concomitant]
     Active Substance: AMLODIPINE BESYLATE
     Route: 048
     Dates: start: 20150217
  32. ETODOLAC. [Concomitant]
     Active Substance: ETODOLAC
     Dosage: GENERIC
     Route: 048
     Dates: start: 20071213
  33. SMZ/TMP [Concomitant]
     Active Substance: SULFAMETHOXAZOLE\TRIMETHOPRIM
     Route: 065
     Dates: start: 20150506
  34. NEXIUM [Suspect]
     Active Substance: ESOMEPRAZOLE MAGNESIUM
     Indication: GASTROOESOPHAGEAL REFLUX DISEASE
     Dosage: 1 DAILY
     Route: 048
     Dates: start: 20060920, end: 2014
  35. NEXIUM [Suspect]
     Active Substance: ESOMEPRAZOLE MAGNESIUM
     Indication: DYSPEPSIA
     Dosage: AS REQUIRED
     Route: 048
     Dates: start: 20100920
  36. NEXIUM [Suspect]
     Active Substance: ESOMEPRAZOLE MAGNESIUM
     Indication: DYSPEPSIA
     Dosage: AS REQUIRED
     Route: 048
     Dates: start: 20060920
  37. METFORMIN [Concomitant]
     Active Substance: METFORMIN HYDROCHLORIDE
     Dosage: ONE Q PM WITH FOOD FOR DIABETES1.0DF AS REQUIRED
     Route: 065
  38. MAGNESIUM OXIDE. [Concomitant]
     Active Substance: MAGNESIUM OXIDE
     Dosage: ONE BID WITH FOOD PRN
     Route: 065
  39. PANTOPRAZOLE [Concomitant]
     Active Substance: PANTOPRAZOLE
     Indication: GASTROOESOPHAGEAL REFLUX DISEASE
     Dosage: GENERIC
     Route: 048
     Dates: start: 20150311
  40. CLINDAMYCIN. [Concomitant]
     Active Substance: CLINDAMYCIN
     Dosage: GENERIC
     Route: 048
     Dates: start: 20071107
  41. CALCIUM ACETATE. [Concomitant]
     Active Substance: CALCIUM ACETATE
     Dates: start: 20190305
  42. MEDROL [Concomitant]
     Active Substance: METHYLPREDNISOLONE
     Dosage: ONE BID WITH FOOD PRN
     Route: 065
  43. TRAMADOL. [Concomitant]
     Active Substance: TRAMADOL
     Indication: PAIN
     Route: 065
  44. GABAPENTIN. [Concomitant]
     Active Substance: GABAPENTIN
     Route: 048
     Dates: start: 20150727
  45. PREDNISOLONE. [Concomitant]
     Active Substance: PREDNISOLONE
     Dates: start: 20120504
  46. CHERATUSSIN [Concomitant]
     Active Substance: AMMONIUM CHLORIDE\DEXTROMETHORPHAN\SODIUM CITRATE
     Dates: start: 20180612
  47. HYDRALAZINE [Concomitant]
     Active Substance: HYDRALAZINE HYDROCHLORIDE
  48. SILDENAFIL. [Concomitant]
     Active Substance: SILDENAFIL
  49. NEXIUM [Suspect]
     Active Substance: ESOMEPRAZOLE MAGNESIUM
     Indication: DYSPEPSIA
     Dosage: AS REQUIRED
     Route: 048
     Dates: start: 20110919
  50. NEXIUM [Suspect]
     Active Substance: ESOMEPRAZOLE MAGNESIUM
     Indication: GASTROOESOPHAGEAL REFLUX DISEASE
     Dosage: AS REQUIRED
     Route: 048
     Dates: start: 20110919
  51. LISINOPRIL. [Concomitant]
     Active Substance: LISINOPRIL
     Indication: BLOOD PRESSURE MEASUREMENT
     Dosage: Q-DAY1.0DF AS REQUIRED
     Route: 065
     Dates: start: 20141215
  52. HYDROCHLOROTHIAZIDE. [Concomitant]
     Active Substance: HYDROCHLOROTHIAZIDE
     Indication: BLOOD PRESSURE MEASUREMENT
     Dosage: GENERIC1.0DF AS REQUIRED
     Route: 048
     Dates: start: 20140210
  53. SIMVASTATIN. [Concomitant]
     Active Substance: SIMVASTATIN
     Indication: BLOOD CHOLESTEROL
     Dosage: ONE Q DAY1.0DF AS REQUIRED
     Route: 065
  54. BYSTOLIC [Concomitant]
     Active Substance: NEBIVOLOL HYDROCHLORIDE
     Route: 065
     Dates: start: 20150506
  55. CIALIS [Concomitant]
     Active Substance: TADALAFIL
     Dosage: ONE TABLET ONE HOUR BEFRE INTERCOURSE20.0MG AS REQUIRED
     Route: 048
     Dates: start: 20100610
  56. PROMETHAZINE [Concomitant]
     Active Substance: PROMETHAZINE HYDROCHLORIDE
     Dates: start: 20110902
  57. DORZOLAMIDE [Concomitant]
     Active Substance: DORZOLAMIDE
     Dates: start: 20120312
  58. NAPROXEN. [Concomitant]
     Active Substance: NAPROXEN
     Dates: start: 20120504
  59. CETRIZINE [Concomitant]
     Active Substance: CETIRIZINE HYDROCHLORIDE
     Dates: start: 20140813
  60. DOXYCYCLINE. [Concomitant]
     Active Substance: DOXYCYCLINE
  61. NEXIUM [Suspect]
     Active Substance: ESOMEPRAZOLE MAGNESIUM
     Indication: DYSPEPSIA
     Dosage: 1 DAILY
     Route: 048
     Dates: start: 20060920, end: 2014
  62. NEXIUM [Suspect]
     Active Substance: ESOMEPRAZOLE MAGNESIUM
     Indication: GASTROOESOPHAGEAL REFLUX DISEASE
     Dosage: AS REQUIRED
     Route: 048
     Dates: start: 20060920
  63. NEXIUM [Suspect]
     Active Substance: ESOMEPRAZOLE MAGNESIUM
     Indication: DYSPEPSIA
     Dosage: AS REQUIRED
     Route: 048
     Dates: start: 20141205
  64. LISINOPRIL. [Concomitant]
     Active Substance: LISINOPRIL
     Indication: BLOOD PRESSURE MEASUREMENT
     Dosage: GENERIC1.0DF AS REQUIRED
     Route: 065
     Dates: start: 20060920
  65. LYRICA [Concomitant]
     Active Substance: PREGABALIN
     Dosage: BEDTIME
     Route: 048
     Dates: start: 20080616
  66. APAP/CODEINE [Concomitant]
     Active Substance: ACETAMINOPHEN\CODEINE PHOSPHATE
     Indication: PAIN
     Dosage: GENERIC
     Route: 048
     Dates: start: 20140604
  67. CICLOPIROX. [Concomitant]
     Active Substance: CICLOPIROX
     Dates: start: 20190305
  68. DOCUSATE [Concomitant]
     Active Substance: DOCUSATE
     Dates: start: 20200310
  69. SENSIPAR [Concomitant]
     Active Substance: CINACALCET HYDROCHLORIDE

REACTIONS (6)
  - Nephrogenic anaemia [Unknown]
  - Nephropathy [Unknown]
  - Chronic kidney disease [Not Recovered/Not Resolved]
  - Renal failure [Not Recovered/Not Resolved]
  - End stage renal disease [Unknown]
  - Acute kidney injury [Not Recovered/Not Resolved]

NARRATIVE: CASE EVENT DATE: 2012
